FAERS Safety Report 10392538 (Version 2)
Quarter: 2014Q3

REPORT INFORMATION
  Report Type: Spontaneous
  Country: CN (occurrence: CN)
  Receive Date: 20140819
  Receipt Date: 20140819
  Transmission Date: 20150326
  Serious: Yes (Other)
  Sender: FDA-Public Use
  Company Number: PHHY2014CN096022

PATIENT
  Age: 66 Year
  Sex: Female

DRUGS (1)
  1. ACLASTA [Suspect]
     Active Substance: ZOLEDRONIC ACID
     Dosage: UNK
     Route: 042

REACTIONS (5)
  - Hepatic enzyme increased [Unknown]
  - Hepatic function abnormal [Unknown]
  - Rash [Recovering/Resolving]
  - Haemorrhage subcutaneous [Recovering/Resolving]
  - Dermatitis allergic [Unknown]
